FAERS Safety Report 17328198 (Version 3)
Quarter: 2020Q1

REPORT INFORMATION
  Report Type: Spontaneous
  Country: JP (occurrence: JP)
  Receive Date: 20200127
  Receipt Date: 20200303
  Transmission Date: 20200409
  Serious: Yes (Death)
  Sender: FDA-Public Use
  Company Number: JP-JNJFOC-20200129788

PATIENT
  Age: 50 Year
  Sex: Male
  Weight: 97 kg

DRUGS (8)
  1. RISPERDAL [Suspect]
     Active Substance: RISPERIDONE
     Indication: SUBSTANCE-INDUCED PSYCHOTIC DISORDER
     Route: 048
     Dates: start: 20090520, end: 20160309
  2. SILECE [Concomitant]
     Active Substance: FLUNITRAZEPAM
     Indication: INSOMNIA
     Dosage: UNKNOWN
     Route: 048
     Dates: start: 20090520
  3. RISPERDAL CONSTA [Suspect]
     Active Substance: RISPERIDONE
     Indication: SUBSTANCE-INDUCED PSYCHOTIC DISORDER
     Dosage: UNKNOWN
     Route: 030
     Dates: start: 20140421, end: 2014
  4. RISPERDAL CONSTA [Suspect]
     Active Substance: RISPERIDONE
     Dosage: UNKNOWN
     Route: 030
     Dates: start: 20140507
  5. RISPERDAL CONSTA [Suspect]
     Active Substance: RISPERIDONE
     Dosage: UNKNOWN
     Route: 030
     Dates: start: 20160309, end: 20200107
  6. RISPERDAL [Suspect]
     Active Substance: RISPERIDONE
     Route: 048
     Dates: start: 20170406
  7. FEBURIC [Concomitant]
     Active Substance: FEBUXOSTAT
     Indication: GOUT
     Dosage: UNKNOWN
     Route: 048
     Dates: start: 20190430
  8. RISPERDAL CONSTA [Suspect]
     Active Substance: RISPERIDONE
     Dosage: UNKNOWN
     Route: 030
     Dates: start: 20160223, end: 2016

REACTIONS (3)
  - Off label use [Unknown]
  - Product use in unapproved indication [Unknown]
  - Sudden death [Fatal]

NARRATIVE: CASE EVENT DATE: 20140421
